FAERS Safety Report 10845711 (Version 1)
Quarter: 2015Q1

REPORT INFORMATION
  Report Type: Spontaneous
  Country: US (occurrence: US)
  Receive Date: 20150220
  Receipt Date: 20150220
  Transmission Date: 20150721
  Serious: Yes (Hospitalization, Other)
  Sender: FDA-Public Use
  Company Number: US-ABBVIE-15P-163-1348844-00

PATIENT
  Age: 42 Year
  Sex: Female
  Weight: 88.98 kg

DRUGS (6)
  1. AYGESTIN [Concomitant]
     Active Substance: NORETHINDRONE ACETATE
     Indication: ADVERSE DRUG REACTION
  2. SERTRALINE [Concomitant]
     Active Substance: SERTRALINE HYDROCHLORIDE
     Indication: DEPRESSION
  3. IMITREX [Concomitant]
     Active Substance: SUMATRIPTAN\SUMATRIPTAN SUCCINATE
     Indication: MIGRAINE
  4. LUPRON DEPOT [Suspect]
     Active Substance: LEUPROLIDE ACETATE
     Indication: UTERINE LEIOMYOMA
     Dosage: ONCE
     Route: 030
     Dates: start: 20141125, end: 20141125
  5. IRON [Concomitant]
     Active Substance: IRON
     Indication: ANAEMIA
     Dosage: PILL
     Route: 048
  6. LUPRON DEPOT [Suspect]
     Active Substance: LEUPROLIDE ACETATE
     Indication: UTERINE LEIOMYOMA
     Route: 030
     Dates: start: 20141218, end: 20141218

REACTIONS (5)
  - Vaginal haemorrhage [Recovered/Resolved]
  - Pelvic haemorrhage [Recovered/Resolved]
  - Haemoglobin decreased [Unknown]
  - Drug ineffective [Recovering/Resolving]
  - Uterine leiomyoma [Recovering/Resolving]

NARRATIVE: CASE EVENT DATE: 2014
